FAERS Safety Report 11867845 (Version 1)
Quarter: 2015Q4

REPORT INFORMATION
  Report Type: Spontaneous
  Country: US (occurrence: US)
  Receive Date: 20151224
  Receipt Date: 20151224
  Transmission Date: 20160305
  Serious: Yes (Death, Other)
  Sender: FDA-Public Use
  Company Number: US-SA-2015SA217959

PATIENT
  Age: 53 Year
  Sex: Female

DRUGS (1)
  1. LOVENOX [Suspect]
     Active Substance: ENOXAPARIN SODIUM
     Indication: DEEP VEIN THROMBOSIS
     Dosage: EVERY 12 HOURS AND THEN INCREASED TO THREE TIMES A DAY
     Route: 058
     Dates: start: 20150814, end: 20150909

REACTIONS (2)
  - Transient ischaemic attack [Unknown]
  - Death [Fatal]

NARRATIVE: CASE EVENT DATE: 2015
